FAERS Safety Report 5850261-7 (Version None)
Quarter: 2008Q3

REPORT INFORMATION
  Report Type: 
  Country: None (occurrence: None)
  Receive Date: 20080819
  Receipt Date: 20080812
  Transmission Date: 20090109
  Serious: Yes (Other)
  Sender: FDA-Public Use
  Company Number: PHHY2008BR02385

PATIENT
  Sex: Female

DRUGS (2)
  1. TEGRETOL [Suspect]
     Indication: TRIGEMINAL NEURALGIA
     Dosage: 2 TABLETS DAILY
     Route: 048
     Dates: start: 20080208, end: 20080318
  2. SYNTHROID [Concomitant]
     Indication: HYPOTHYROIDISM
     Dosage: 25 UG, BID
     Route: 048

REACTIONS (6)
  - DIZZINESS [None]
  - FACIAL NERVE DISORDER [None]
  - FACIAL PAIN [None]
  - FATIGUE [None]
  - INSOMNIA [None]
  - SURGERY [None]
